FAERS Safety Report 4717623-2 (Version None)
Quarter: 2005Q3

REPORT INFORMATION
  Report Type: 
  Country: None (occurrence: None)
  Receive Date: 20050712
  Receipt Date: 20050315
  Transmission Date: 20060218
  Serious: No
  Sender: FDA-Public Use
  Company Number: 2005S1000045

PATIENT
  Age: 46 Year
  Sex: Female
  Weight: 154 kg

DRUGS (4)
  1. CUBICIN [Suspect]
     Indication: ENTEROCOCCAL INFECTION
     Dosage: 600 MG; Q24H; IV
     Route: 042
     Dates: start: 20050311
  2. VANCOMYCIN [Concomitant]
  3. CEFEPIME [Concomitant]
  4. METRONIDAZOLE [Concomitant]

REACTIONS (1)
  - BLOOD CREATININE INCREASED [None]
